FAERS Safety Report 15537732 (Version 2)
Quarter: 2018Q4

REPORT INFORMATION
  Report Type: Spontaneous
  Country: DE (occurrence: DE)
  Receive Date: 20181022
  Receipt Date: 20181119
  Transmission Date: 20190205
  Serious: Yes (Disabling, Other)
  Sender: FDA-Public Use
  Company Number: DE-BAYER-2018-191886

PATIENT
  Age: 61 Year
  Sex: Male
  Weight: 87 kg

DRUGS (1)
  1. MAGNOGRAF [Suspect]
     Active Substance: GADOPENTETATE DIMEGLUMINE
     Indication: INTRACRANIAL ANEURYSM
     Dosage: 17.5 ML, UNK
     Dates: start: 20170512

REACTIONS (6)
  - Muscle spasms [None]
  - Neuralgia [None]
  - Polymyalgia rheumatica [None]
  - Depressive symptom [None]
  - Visual acuity reduced [None]
  - Irritability [None]

NARRATIVE: CASE EVENT DATE: 201803
